FAERS Safety Report 7937609-4 (Version None)
Quarter: 2011Q4

REPORT INFORMATION
  Report Type: 
  Country: None (occurrence: None)
  Receive Date: 20111123
  Receipt Date: 20111029
  Transmission Date: 20120403
  Serious: Yes (Life-Threatening, Other)
  Sender: FDA-Public Use
  Company Number: AU-ASTRAZENECA-2011SE65423

PATIENT
  Age: 32 Year
  Sex: Female
  Weight: 62 kg

DRUGS (3)
  1. ROPIVACAINE HYDROCHLORIDE [Suspect]
     Route: 008
  2. ROPIVACAINE HYDROCHLORIDE [Suspect]
     Indication: LOCAL ANAESTHESIA
     Route: 008
  3. ROPIVACAINE HYDROCHLORIDE [Suspect]
     Route: 008

REACTIONS (2)
  - OVERDOSE [None]
  - SPINAL ANAESTHESIA [None]
